FAERS Safety Report 6397829-X (Version None)
Quarter: 2009Q4

REPORT INFORMATION
  Report Type: 
  Country: None (occurrence: None)
  Receive Date: 20091012
  Receipt Date: 20091008
  Transmission Date: 20100525
  Serious: Yes (Death)
  Sender: FDA-Public Use
  Company Number: US-GILEAD-2009-0024126

PATIENT
  Sex: Male
  Weight: 111.23 kg

DRUGS (11)
  1. LETAIRIS [Suspect]
     Indication: PULMONARY ARTERIAL HYPERTENSION
     Route: 048
     Dates: start: 20090301
  2. VIAGRA [Concomitant]
  3. WARFARIN SODIUM [Concomitant]
  4. FUROSEMIDE [Concomitant]
  5. RAMIPRIL [Concomitant]
  6. CARVEDILOL [Concomitant]
  7. GLIPIZIDE [Concomitant]
  8. PREDNISONE [Concomitant]
  9. TYLENOL (CAPLET) [Concomitant]
  10. POTASSIUM CHLORIDE [Concomitant]
  11. MULTI-VITAMIN [Concomitant]

REACTIONS (1)
  - DEATH [None]
